FAERS Safety Report 11814922 (Version 1)
Quarter: 2015Q4

REPORT INFORMATION
  Report Type: Spontaneous
  Country: US (occurrence: US)
  Receive Date: 20151209
  Receipt Date: 20151209
  Transmission Date: 20160305
  Serious: No
  Sender: FDA-Public Use
  Company Number: US-SA-2015SA142127

PATIENT
  Age: 31 Year
  Sex: Male

DRUGS (2)
  1. TOUJEO [Suspect]
     Active Substance: INSULIN GLARGINE
     Dosage: DOSE:25 UNIT(S)
     Route: 065
     Dates: start: 201506
  2. SOLOSTAR [Concomitant]
     Active Substance: DEVICE
     Dates: start: 201506

REACTIONS (1)
  - Drug administration error [Unknown]
